FAERS Safety Report 10792762 (Version 1)
Quarter: 2015Q1

REPORT INFORMATION
  Report Type: Spontaneous
  Country: CN (occurrence: CN)
  Receive Date: 20150213
  Receipt Date: 20150213
  Transmission Date: 20150721
  Serious: Yes (Death, Hospitalization)
  Sender: FDA-Public Use
  Company Number: CN-BAYER-2015-018117

PATIENT
  Age: 75 Year
  Sex: Male

DRUGS (5)
  1. AVELOX [Suspect]
     Active Substance: MOXIFLOXACIN HYDROCHLORIDE
     Indication: PNEUMONIA
     Dosage: 400 MG, QD
     Route: 042
     Dates: start: 20150120, end: 20150121
  2. AVELOX [Suspect]
     Active Substance: MOXIFLOXACIN HYDROCHLORIDE
     Indication: PNEUMONIA
     Dosage: UNK
     Route: 048
     Dates: start: 20150110, end: 20150115
  3. DOXOFYLLINE [Concomitant]
     Active Substance: DOXOFYLLINE
     Dosage: UNK
     Dates: start: 20150120
  4. DYPHYLLINE [Concomitant]
     Active Substance: DYPHYLLINE
     Dosage: UNK
     Dates: start: 20150120
  5. GLYCYRRHIZA EXTRACT [Concomitant]
     Active Substance: GLYCYRRHIZA EXTRACT
     Dosage: UNK
     Dates: start: 20150120

REACTIONS (9)
  - Condition aggravated [None]
  - Tremor [Not Recovered/Not Resolved]
  - Dizziness [None]
  - Productive cough [None]
  - Musculoskeletal stiffness [Not Recovered/Not Resolved]
  - Death [Fatal]
  - Parkinsonism [Not Recovered/Not Resolved]
  - Myotonia [Not Recovered/Not Resolved]
  - Masked facies [Not Recovered/Not Resolved]

NARRATIVE: CASE EVENT DATE: 20150120
